FAERS Safety Report 20099104 (Version 1)
Quarter: 2021Q4

REPORT INFORMATION
  Report Type: Spontaneous
  Country: US (occurrence: None)
  Receive Date: 20211121
  Receipt Date: 20211121
  Transmission Date: 20220303
  Serious: No
  Sender: FDA-Public Use
  Company Number: None

PATIENT

DRUGS (2)
  1. CHLORPROMAZINE HYDROCHLORIDE [Suspect]
     Active Substance: CHLORPROMAZINE HYDROCHLORIDE
     Route: 048
  2. GLIPIZIDE ER [Suspect]
     Active Substance: GLIPIZIDE
     Route: 048

REACTIONS (4)
  - Packaging design issue [None]
  - Product label confusion [None]
  - Product packaging confusion [None]
  - Product appearance confusion [None]
